FAERS Safety Report 14757780 (Version 1)
Quarter: 2018Q2

REPORT INFORMATION
  Report Type: Spontaneous
  Country: CN (occurrence: CN)
  Receive Date: 20180413
  Receipt Date: 20180413
  Transmission Date: 20180711
  Serious: Yes (Other)
  Sender: FDA-Public Use
  Company Number: CN-009507513-1804CHN004774

PATIENT
  Age: 53 Year
  Sex: Female

DRUGS (3)
  1. ALENDRONATE SODIUM. [Suspect]
     Active Substance: ALENDRONATE SODIUM
     Indication: OSTEONECROSIS
     Dosage: 70 MG, UNK
     Route: 048
     Dates: start: 20150702, end: 20150729
  2. ALPROSTADIL. [Suspect]
     Active Substance: ALPROSTADIL
     Indication: OSTEONECROSIS
     Dosage: 10 MICROGRAM (IVGTT), BID
     Route: 042
     Dates: start: 20150702, end: 20150717
  3. ENOXAPARIN SODIUM. [Suspect]
     Active Substance: ENOXAPARIN SODIUM
     Indication: OSTEONECROSIS
     Dosage: 6000 IU (H), QD
     Dates: start: 20150702, end: 20150717

REACTIONS (1)
  - Haematochezia [Unknown]

NARRATIVE: CASE EVENT DATE: 201507
